FAERS Safety Report 12777421 (Version 1)
Quarter: 2016Q3

REPORT INFORMATION
  Report Type: Spontaneous
  Country: US (occurrence: US)
  Receive Date: 20160924
  Receipt Date: 20160924
  Transmission Date: 20161109
  Serious: No
  Sender: FDA-Public Use
  Company Number: US-ASTRAZENECA-2016SE97788

PATIENT
  Age: 946 Month
  Sex: Female
  Weight: 48.5 kg

DRUGS (3)
  1. TUDORZA PRESSAIR [Suspect]
     Active Substance: ACLIDINIUM BROMIDE
     Indication: BRONCHIECTASIS
     Dosage: 400MCG ONE INHALATION TWICE DAILY
     Route: 055
     Dates: start: 201503
  2. TUDORZA PRESSAIR [Suspect]
     Active Substance: ACLIDINIUM BROMIDE
     Indication: CHRONIC OBSTRUCTIVE PULMONARY DISEASE
     Dosage: 400MCG ONE INHALATION TWICE DAILY
     Route: 055
     Dates: start: 201503
  3. TUDORZA PRESSAIR [Suspect]
     Active Substance: ACLIDINIUM BROMIDE
     Indication: TUBERCULOSIS
     Dosage: 400MCG ONE INHALATION TWICE DAILY
     Route: 055
     Dates: start: 201503

REACTIONS (1)
  - Pulmonary function test decreased [Unknown]

NARRATIVE: CASE EVENT DATE: 201604
